FAERS Safety Report 4642451-6 (Version None)
Quarter: 2005Q2

REPORT INFORMATION
  Report Type: 
  Country: None (occurrence: None)
  Receive Date: 20050422
  Receipt Date: 20050411
  Transmission Date: 20051028
  Serious: Yes (Disabling)
  Sender: FDA-Public Use
  Company Number: GB-ROCHE-401559

PATIENT
  Age: 16 Year
  Sex: Male
  Weight: 71 kg

DRUGS (4)
  1. ROACCUTANE [Suspect]
     Route: 048
     Dates: start: 20040715, end: 20040826
  2. ROACCUTANE [Suspect]
     Route: 048
     Dates: start: 20040826, end: 20040927
  3. TRIMETHOPRIM [Concomitant]
     Route: 048
     Dates: start: 20040415, end: 20040715
  4. BREVOXYL [Concomitant]
     Route: 061
     Dates: start: 20040120, end: 20040715

REACTIONS (3)
  - ARTHRALGIA [None]
  - DIARRHOEA [None]
  - MOUTH ULCERATION [None]
